FAERS Safety Report 11385421 (Version 1)
Quarter: 2015Q3

REPORT INFORMATION
  Report Type: Report from Study
  Country: CO (occurrence: CO)
  Receive Date: 20150815
  Receipt Date: 20150815
  Transmission Date: 20151125
  Serious: Yes (Other)
  Sender: FDA-Public Use
  Company Number: CO-ABBVIE-14K-036-1302031-00

PATIENT
  Age: 40 Year
  Sex: Male
  Weight: 58 kg

DRUGS (1)
  1. HUMIRA [Suspect]
     Active Substance: ADALIMUMAB
     Indication: PSORIASIS
     Route: 058
     Dates: start: 20130119, end: 20141012

REACTIONS (5)
  - Eye abscess [Not Recovered/Not Resolved]
  - Erythema [Not Recovered/Not Resolved]
  - Blindness unilateral [Recovering/Resolving]
  - Inflammation [Not Recovered/Not Resolved]
  - Abscess of eyelid [Recovered/Resolved]

NARRATIVE: CASE EVENT DATE: 201410
